FAERS Safety Report 18612349 (Version 1)
Quarter: 2020Q4

REPORT INFORMATION
  Report Type: Spontaneous
  Country: FR (occurrence: FR)
  Receive Date: 20201214
  Receipt Date: 20201214
  Transmission Date: 20210114
  Serious: Yes (Hospitalization)
  Sender: FDA-Public Use
  Company Number: FR-PFIZER INC-2020401731

PATIENT
  Age: 51 Year
  Sex: Female
  Weight: 50 kg

DRUGS (6)
  1. DALACINE [Suspect]
     Active Substance: CLINDAMYCIN
     Dosage: UNK
     Dates: start: 20200826, end: 20200922
  2. FUCIDIN [FUSIDATE SODIUM] [Suspect]
     Active Substance: FUSIDATE SODIUM
     Dosage: UNK
     Route: 048
     Dates: start: 20200826, end: 20201001
  3. DUROGESIC [Concomitant]
     Active Substance: FENTANYL
     Dosage: UNK
  4. LUTERAN [Concomitant]
     Active Substance: CHLORMADINONE ACETATE
     Dosage: UNK
  5. ABSTRAL [Concomitant]
     Active Substance: FENTANYL CITRATE
     Dosage: UNK
  6. FLUOXETINE ARROW [Concomitant]
     Active Substance: FLUOXETINE HYDROCHLORIDE
     Dosage: UNK

REACTIONS (3)
  - Hypercalcaemia [Recovering/Resolving]
  - Diarrhoea [Recovering/Resolving]
  - Hypoparathyroidism [Recovering/Resolving]

NARRATIVE: CASE EVENT DATE: 20200922
